FAERS Safety Report 9079036 (Version 5)
Quarter: 2014Q1

REPORT INFORMATION
  Report Type: Report from Study
  Country: CA (occurrence: CA)
  Receive Date: 20130130
  Receipt Date: 20140312
  Transmission Date: 20141002
  Serious: Yes (Hospitalization, Other)
  Sender: FDA-Public Use
  Company Number: CA-ROCHE-1184721

PATIENT
  Age: 72 Year
  Sex: Female
  Weight: 49.4 kg

DRUGS (15)
  1. RITUXAN [Suspect]
     Indication: GRANULOMATOSIS WITH POLYANGIITIS
     Route: 042
     Dates: start: 20120925
  2. RITUXAN [Suspect]
     Indication: ANTINEUTROPHIL CYTOPLASMIC ANTIBODY POSITIVE
     Route: 042
     Dates: start: 20131003
  3. RITUXAN [Suspect]
     Indication: VASCULITIS
  4. METHOTREXATE [Suspect]
     Indication: GRANULOMATOSIS WITH POLYANGIITIS
     Route: 065
     Dates: end: 2012
  5. CYCLOPHOSPHAMIDE [Suspect]
     Indication: GRANULOMATOSIS WITH POLYANGIITIS
     Route: 065
     Dates: start: 2012, end: 2012
  6. IMURAN [Suspect]
     Indication: PRODUCT USED FOR UNKNOWN INDICATION
     Route: 065
  7. PREDNISONE [Concomitant]
     Dosage: 1 MG LESS EVERY MONTH
     Route: 065
  8. RABEPRAZOLE [Concomitant]
  9. ACTONEL [Concomitant]
  10. FELODIPINE [Concomitant]
  11. DIPHENHYDRAMINE HCL [Concomitant]
     Indication: PREMEDICATION
     Route: 048
     Dates: start: 20121009
  12. ACETAMINOPHEN [Concomitant]
     Indication: PREMEDICATION
     Route: 048
     Dates: start: 20121009
  13. METHYLPREDNISOLONE [Concomitant]
     Indication: PREMEDICATION
     Route: 042
     Dates: start: 20121009
  14. VITAMIN B12 [Concomitant]
  15. FOLIC ACID [Concomitant]

REACTIONS (9)
  - Granulomatosis with polyangiitis [Unknown]
  - Pyrexia [Unknown]
  - White blood cell count decreased [Recovered/Resolved]
  - Pneumonitis [Unknown]
  - Haemoglobin decreased [Unknown]
  - Cough [Recovering/Resolving]
  - Neutropenia [Unknown]
  - Hypertonic bladder [Recovering/Resolving]
  - Hypotension [Unknown]
